FAERS Safety Report 14034940 (Version 1)
Quarter: 2017Q4

REPORT INFORMATION
  Report Type: Spontaneous
  Country: CZ (occurrence: CZ)
  Receive Date: 20171003
  Receipt Date: 20171003
  Transmission Date: 20180321
  Serious: Yes (Hospitalization, Other)
  Sender: FDA-Public Use
  Company Number: PHHY2017CZ142942

PATIENT
  Age: 38 Year
  Sex: Female

DRUGS (1)
  1. AMOKSIKLAV [Suspect]
     Active Substance: AMOXICILLIN\CLAVULANATE POTASSIUM
     Indication: TOOTH INFECTION
     Dosage: 875 MG, Q12H
     Route: 048
     Dates: start: 20170910, end: 20170910

REACTIONS (3)
  - Swelling face [Unknown]
  - Rash generalised [Unknown]
  - Nausea [Unknown]

NARRATIVE: CASE EVENT DATE: 20170910
